FAERS Safety Report 10393608 (Version 1)
Quarter: 2014Q3

REPORT INFORMATION
  Report Type: Spontaneous
  Country: IT (occurrence: IT)
  Receive Date: 20140819
  Receipt Date: 20140819
  Transmission Date: 20150326
  Serious: Yes (Hospitalization)
  Sender: FDA-Public Use
  Company Number: IT-MYLAN-2014M1001675

PATIENT

DRUGS (6)
  1. AMIODARONE [Interacting]
     Active Substance: AMIODARONE
     Route: 042
  2. WARFARIN [Interacting]
     Active Substance: WARFARIN
     Dosage: 2.5 MG/DAY
     Route: 065
  3. WARFARIN [Suspect]
     Active Substance: WARFARIN
     Dosage: 5 MG/DAY
     Route: 065
  4. AMIODARONE [Interacting]
     Active Substance: AMIODARONE
     Indication: VENTRICULAR TACHYCARDIA
     Dosage: 400 MG/DAY
     Route: 065
  5. BISOPROLOL [Concomitant]
     Active Substance: BISOPROLOL
     Indication: VENTRICULAR TACHYCARDIA
     Dosage: 1.25 MG/DAY
     Route: 065
  6. MEXILETINE [Concomitant]
     Active Substance: MEXILETINE
     Indication: VENTRICULAR TACHYCARDIA
     Route: 065

REACTIONS (6)
  - Drug interaction [Recovered/Resolved]
  - Cerebral ischaemia [None]
  - Hyperthyroidism [Recovered/Resolved]
  - International normalised ratio increased [Recovered/Resolved]
  - Blindness [None]
  - Cardiac ventricular thrombosis [None]
